FAERS Safety Report 5585078-4 (Version None)
Quarter: 2008Q1

REPORT INFORMATION
  Report Type: 
  Country: None (occurrence: None)
  Receive Date: 20080109
  Receipt Date: 20071214
  Transmission Date: 20080703
  Serious: No
  Sender: FDA-Public Use
  Company Number: US-BOEHRINGER INGELHEIM PHARMACEUTICALS, INC.-2007-BP-26408BP

PATIENT
  Sex: Female

DRUGS (6)
  1. SPIRIVA [Suspect]
     Indication: CHRONIC OBSTRUCTIVE PULMONARY DISEASE
     Dates: start: 20060101
  2. SPIRIVA [Suspect]
     Indication: EMPHYSEMA
  3. SPIRIVA [Suspect]
     Indication: BRONCHITIS
  4. SPIRIVA [Suspect]
     Indication: DYSPNOEA
  5. ALBUTEROL SULFATE [Concomitant]
  6. OTHER PRESCRIPTION MEDICATIONS [Concomitant]

REACTIONS (2)
  - CHOKING [None]
  - MALAISE [None]
